FAERS Safety Report 16290276 (Version 2)
Quarter: 2019Q2

REPORT INFORMATION
  Report Type: Spontaneous
  Country: PK (occurrence: PK)
  Receive Date: 20190509
  Receipt Date: 20190523
  Transmission Date: 20190711
  Serious: Yes (Hospitalization)
  Sender: FDA-Public Use
  Company Number: PK-SA-2019SA123678

PATIENT
  Age: 50 Year
  Sex: Female

DRUGS (1)
  1. LANTUS SOLOSTAR [Suspect]
     Active Substance: INSULIN GLARGINE
     Indication: DIABETES MELLITUS
     Dosage: 14 U, QD
     Route: 058
     Dates: start: 20190405

REACTIONS (6)
  - Cholecystectomy [Unknown]
  - Hyperglycaemia [Recovered/Resolved]
  - Decreased appetite [Not Recovered/Not Resolved]
  - Ageusia [Recovered/Resolved]
  - Cholelithiasis [Recovered/Resolved]
  - Thirst decreased [Not Recovered/Not Resolved]

NARRATIVE: CASE EVENT DATE: 20140517
